FAERS Safety Report 13779972 (Version 1)
Quarter: 2017Q3

REPORT INFORMATION
  Report Type: Report from Study
  Country: None (occurrence: US)
  Receive Date: 20170723
  Receipt Date: 20170723
  Transmission Date: 20171127
  Serious: Yes (Other)
  Sender: FDA-Public Use
  Company Number: US-ABBVIE-17K-163-2020111-00

PATIENT
  Sex: Male

DRUGS (4)
  1. HUMIRA [Suspect]
     Active Substance: ADALIMUMAB
     Dosage: DAY 15, 2 PENS
     Route: 058
     Dates: start: 20170426, end: 20170426
  2. HUMIRA [Suspect]
     Active Substance: ADALIMUMAB
     Route: 058
     Dates: start: 20170524
  3. HUMIRA [Suspect]
     Active Substance: ADALIMUMAB
     Indication: CROHN^S DISEASE
     Dosage: DAY 1, 4 PENS
     Route: 058
     Dates: start: 20170412, end: 20170412
  4. HUMIRA [Suspect]
     Active Substance: ADALIMUMAB
     Dosage: DAY 29
     Route: 058
     Dates: start: 20170510, end: 20170510

REACTIONS (14)
  - Decreased appetite [Unknown]
  - Seasonal allergy [Unknown]
  - Abdominal pain upper [Unknown]
  - Anxiety [Unknown]
  - Fear [Unknown]
  - Constipation [Unknown]
  - Nausea [Unknown]
  - Bowel movement irregularity [Unknown]
  - Insomnia [Unknown]
  - Diarrhoea [Unknown]
  - Vomiting [Unknown]
  - Intervertebral disc protrusion [Unknown]
  - Impaired quality of life [Unknown]
  - Depressed mood [Unknown]

NARRATIVE: CASE EVENT DATE: 2017
